FAERS Safety Report 24080566 (Version 1)
Quarter: 2024Q3

REPORT INFORMATION
  Report Type: Spontaneous
  Country: CN (occurrence: CN)
  Receive Date: 20240711
  Receipt Date: 20240711
  Transmission Date: 20241016
  Serious: Yes (Death)
  Sender: FERRING
  Company Number: CN-FERRINGPH-2024FE03776

PATIENT

DRUGS (1)
  1. FIRMAGON [Suspect]
     Active Substance: DEGARELIX ACETATE
     Indication: Prostate cancer
     Dosage: 80 MG, EVERY 28 DAYS
     Route: 058
     Dates: start: 20240407, end: 20240705

REACTIONS (1)
  - Disease progression [Fatal]
